FAERS Safety Report 15787621 (Version 1)
Quarter: 2019Q1

REPORT INFORMATION
  Report Type: Report from Study
  Country: US (occurrence: US)
  Receive Date: 20190103
  Receipt Date: 20190103
  Transmission Date: 20190417
  Serious: Yes (Hospitalization, Other)
  Sender: FDA-Public Use
  Company Number: US-GILEAD-2018-0379329

PATIENT
  Age: 34 Year
  Sex: Female

DRUGS (1)
  1. AMBRISENTAN [Suspect]
     Active Substance: AMBRISENTAN
     Indication: PULMONARY HYPERTENSION
     Dosage: 10 MG, QD
     Route: 065

REACTIONS (6)
  - Headache [Unknown]
  - Pain [Unknown]
  - Myocardial infarction [Unknown]
  - Syncope [Recovered/Resolved]
  - Pulmonary hypertension [Unknown]
  - Fluid retention [Unknown]
